FAERS Safety Report 9523578 (Version 3)
Quarter: 2014Q3

REPORT INFORMATION
  Report Type: Spontaneous
  Country: US (occurrence: US)
  Receive Date: 20130913
  Receipt Date: 20140911
  Transmission Date: 20150326
  Serious: No
  Sender: FDA-Public Use
  Company Number: US-009507513-1309USA003685

PATIENT
  Sex: Female

DRUGS (1)
  1. NUVARING [Suspect]
     Active Substance: ETHINYL ESTRADIOL\ETONOGESTREL
     Indication: PRODUCT USED FOR UNKNOWN INDICATION
     Dosage: UNK
     Route: 067
     Dates: start: 20090212, end: 20111025

REACTIONS (14)
  - Cardiac murmur [Unknown]
  - Deep vein thrombosis [Unknown]
  - Mitral valve prolapse [Unknown]
  - Cold urticaria [Unknown]
  - Mitral valve incompetence [Unknown]
  - Sleep apnoea syndrome [Unknown]
  - Pain in extremity [Unknown]
  - Weight increased [Unknown]
  - Plantar fasciitis [Unknown]
  - Asthma [Unknown]
  - Skin depigmentation [Unknown]
  - Herpes simplex [Unknown]
  - Hyperlipidaemia [Unknown]
  - Migraine [Unknown]

NARRATIVE: CASE EVENT DATE: 20111025
